FAERS Safety Report 21203646 (Version 9)
Quarter: 2024Q1

REPORT INFORMATION
  Report Type: Report from Study
  Country: US (occurrence: US)
  Receive Date: 20220811
  Receipt Date: 20240311
  Transmission Date: 20240409
  Serious: Yes (Other)
  Sender: FDA-Public Use
  Company Number: US-NOVARTISTESTPH-NVSC2022US181334

PATIENT
  Age: 55 Year
  Sex: Male

DRUGS (4)
  1. KESIMPTA [Suspect]
     Active Substance: OFATUMUMAB
     Indication: Multiple sclerosis
     Dosage: 20 MG, QMO (EVERY 28 DAYS)
     Route: 058
     Dates: start: 20220223
  2. VENETOCLAX [Suspect]
     Active Substance: VENETOCLAX
     Indication: Leukaemia
     Dosage: UNK
     Route: 065
     Dates: end: 202210
  3. ACALABRUTINIB [Suspect]
     Active Substance: ACALABRUTINIB
     Indication: Product used for unknown indication
     Dosage: UNK
     Route: 065
     Dates: start: 20220830
  4. HUMAN IMMUNOGLOBULIN G [Concomitant]
     Active Substance: HUMAN IMMUNOGLOBULIN G
     Indication: Leukaemia
     Dosage: UNK
     Route: 042
     Dates: start: 20220729

REACTIONS (6)
  - Diabetes mellitus [Unknown]
  - Multiple sclerosis [Unknown]
  - Memory impairment [Not Recovered/Not Resolved]
  - Disturbance in attention [Unknown]
  - Injection site bruising [Not Recovered/Not Resolved]
  - Product dose omission in error [Unknown]

NARRATIVE: CASE EVENT DATE: 20220729
